FAERS Safety Report 8012963-6 (Version None)
Quarter: 2011Q4

REPORT INFORMATION
  Report Type: 
  Country: None (occurrence: None)
  Receive Date: 20111223
  Receipt Date: 20111208
  Transmission Date: 20120403
  Serious: Yes (Death, Life-Threatening)
  Sender: FDA-Public Use
  Company Number: 1129728

PATIENT

DRUGS (1)
  1. EPINEPHRINE [Suspect]
     Indication: CARDIAC ARREST

REACTIONS (2)
  - WRONG DRUG ADMINISTERED [None]
  - PRODUCT PACKAGING ISSUE [None]
